FAERS Safety Report 6678295-3 (Version None)
Quarter: 2010Q2

REPORT INFORMATION
  Report Type: 
  Country: None (occurrence: None)
  Receive Date: 20100412
  Receipt Date: 20100412
  Transmission Date: 20101027
  Serious: No
  Sender: FDA-Public Use
  Company Number: None

PATIENT
  Age: 28 Year
  Sex: Female
  Weight: 17.2367 kg

DRUGS (1)
  1. NASONEX [Suspect]
     Indication: HYPERSENSITIVITY
     Dosage: 1 SPRAY PER NOSTRIL 1 X DAILY NASAL
     Route: 045
     Dates: start: 20100402, end: 20100409

REACTIONS (1)
  - BLOOD GLUCOSE INCREASED [None]
